FAERS Safety Report 9127639 (Version 1)
Quarter: 2013Q1

REPORT INFORMATION
  Report Type: Spontaneous
  Country: US (occurrence: US)
  Receive Date: 20130228
  Receipt Date: 20130228
  Transmission Date: 20140127
  Serious: No
  Sender: FDA-Public Use
  Company Number: US-GLAXOSMITHKLINE-A0989075A

PATIENT
  Age: 59 Year
  Sex: Female

DRUGS (2)
  1. LAMOTRIGINE [Suspect]
     Indication: BIPOLAR I DISORDER
     Dosage: 100MG PER DAY
     Route: 048
     Dates: start: 2003, end: 20120806
  2. SERTRALINE [Concomitant]

REACTIONS (4)
  - Disturbance in attention [Not Recovered/Not Resolved]
  - Abnormal behaviour [Unknown]
  - Lacrimation increased [Unknown]
  - Malaise [Unknown]
